FAERS Safety Report 13555349 (Version 1)
Quarter: 2017Q2

REPORT INFORMATION
  Report Type: Spontaneous
  Country: US (occurrence: US)
  Receive Date: 20170517
  Receipt Date: 20170517
  Transmission Date: 20170830
  Serious: No
  Sender: FDA-Public Use
  Company Number: US-ACADIA PHARMACEUTICALS INC.-ACA-2017-002267

PATIENT
  Sex: Male

DRUGS (1)
  1. NUPLAZID [Suspect]
     Active Substance: PIMAVANSERIN TARTRATE
     Indication: TOURETTE^S DISORDER
     Dosage: UNK

REACTIONS (6)
  - Off label use [Unknown]
  - Peripheral swelling [Unknown]
  - Anaemia [Unknown]
  - Libido disorder [Unknown]
  - Drug ineffective for unapproved indication [Unknown]
  - Appetite disorder [Unknown]
